FAERS Safety Report 6604339-0 (Version None)
Quarter: 2010Q1

REPORT INFORMATION
  Report Type: 
  Country: None (occurrence: None)
  Receive Date: 20100226
  Receipt Date: 20090826
  Transmission Date: 20100710
  Serious: No
  Sender: FDA-Public Use
  Company Number: A0804578A

PATIENT
  Age: 49 Year
  Sex: Female

DRUGS (4)
  1. LAMICTAL CD [Suspect]
     Indication: DEPRESSION
     Dosage: 50MG PER DAY
     Route: 048
     Dates: start: 20090812, end: 20090825
  2. PAXIL [Suspect]
     Indication: DEPRESSION
     Dosage: 20MG TWICE PER DAY
     Route: 048
     Dates: start: 20090812, end: 20090819
  3. LEXAPRO [Concomitant]
  4. LUNESTA [Concomitant]

REACTIONS (4)
  - DRUG INEFFECTIVE [None]
  - DRY MOUTH [None]
  - LYMPHADENOPATHY [None]
  - PAIN [None]
